FAERS Safety Report 14979922 (Version 2)
Quarter: 2018Q2

REPORT INFORMATION
  Report Type: Spontaneous
  Country: PL (occurrence: PL)
  Receive Date: 20180606
  Receipt Date: 20180626
  Transmission Date: 20180711
  Serious: Yes (Hospitalization, Other)
  Sender: FDA-Public Use
  Company Number: PL-MYLANLABS-2018M1037150

PATIENT
  Age: 61 Year
  Sex: Male

DRUGS (1)
  1. DICLOFENAC [Suspect]
     Active Substance: DICLOFENAC
     Indication: GOUT
     Dosage: UNK
     Route: 048

REACTIONS (11)
  - Overdose [Unknown]
  - Oesophagitis [Unknown]
  - Drug abuse [Unknown]
  - Occult blood [Unknown]
  - Gastric disorder [Unknown]
  - Normocytic anaemia [Unknown]
  - Bronchitis [Recovering/Resolving]
  - Tubulointerstitial nephritis [Recovered/Resolved]
  - Gout [Recovering/Resolving]
  - Duodenitis [Unknown]
  - Chest pain [Recovering/Resolving]
